FAERS Safety Report 4455216-5 (Version None)
Quarter: 2004Q3

REPORT INFORMATION
  Report Type: 
  Country: None (occurrence: None)
  Receive Date: 20040830
  Receipt Date: 20040511
  Transmission Date: 20050211
  Serious: No
  Sender: FDA-Public Use
  Company Number: 206063

PATIENT
  Age: 48 Year
  Sex: Female
  Weight: 76.6 kg

DRUGS (8)
  1. XOLAIR [Suspect]
     Indication: ASTHMA
     Dosage: 150 MG, 1/MONTH, SUBCUTANEOUS
     Route: 058
     Dates: start: 20040813, end: 20040227
  2. DUONEB (IPRATROPIUM BROMIDE, ALBUTEROL, ALBUTEROL SULFATE) [Concomitant]
  3. NEXIUM [Concomitant]
  4. XOPENEX [Concomitant]
  5. ACCOLATE [Concomitant]
  6. DEMADEX [Concomitant]
  7. WELLBUTRIN XL (BUPROPION HYDROCHLORIDE) [Concomitant]
  8. FORADIL [Concomitant]

REACTIONS (1)
  - AMENORRHOEA [None]
